FAERS Safety Report 18166170 (Version 1)
Quarter: 2020Q3

REPORT INFORMATION
  Report Type: Spontaneous
  Country: DE (occurrence: DE)
  Receive Date: 20200819
  Receipt Date: 20200819
  Transmission Date: 20201103
  Serious: Yes (Hospitalization)
  Sender: FDA-Public Use
  Company Number: DE-TEVA-2020-DE-1815366

PATIENT
  Age: 65 Year
  Sex: Female
  Weight: 85 kg

DRUGS (3)
  1. NOVORAPID [Concomitant]
     Active Substance: INSULIN ASPART
     Dosage: ACCORDING TO SCHEME
  2. LISINOPRIL/HYDROCHLORTHIAZIDE [Suspect]
     Active Substance: HYDROCHLOROTHIAZIDE\LISINOPRIL
     Dosage: 1 DOSAGE FORMS DAILY; 12.5|20 MG, 1?0?0?0
  3. LANTUS [Concomitant]
     Active Substance: INSULIN GLARGINE
     Dosage: 20 IU (INTERNATIONAL UNIT) DAILY;  0?0?0?1

REACTIONS (6)
  - Hyponatraemia [Unknown]
  - Acute kidney injury [Unknown]
  - Oliguria [Unknown]
  - Pyelonephritis [Unknown]
  - Pruritus [Unknown]
  - Urinary retention [Unknown]
